FAERS Safety Report 8120089-6 (Version None)
Quarter: 2012Q1

REPORT INFORMATION
  Report Type: 
  Country: None (occurrence: None)
  Receive Date: 20120207
  Receipt Date: 20120126
  Transmission Date: 20120608
  Serious: Yes (Hospitalization)
  Sender: FDA-Public Use
  Company Number: DE-MEDIMMUNE-MEDI-0014735

PATIENT
  Sex: Male

DRUGS (3)
  1. SYNAGIS [Suspect]
     Route: 030
     Dates: start: 20111110, end: 20120109
  2. SYNAGIS [Suspect]
     Route: 030
     Dates: start: 20111013, end: 20111013
  3. INHALATION [Concomitant]
     Route: 055

REACTIONS (4)
  - PNEUMONIA [None]
  - BRONCHOPNEUMONIA [None]
  - HOSPITALISATION [None]
  - COUGH [None]
